FAERS Safety Report 20517860 (Version 1)
Quarter: 2022Q1

REPORT INFORMATION
  Report Type: Spontaneous
  Country: US (occurrence: None)
  Receive Date: 20220224
  Receipt Date: 20220224
  Transmission Date: 20220423
  Serious: Yes (Death)
  Sender: FDA-Public Use
  Company Number: None

PATIENT
  Age: 76 Year
  Sex: Male
  Weight: 69 kg

DRUGS (1)
  1. TOCILIZUMAB [Suspect]
     Active Substance: TOCILIZUMAB
     Indication: COVID-19
     Dates: start: 20220124, end: 20220124

REACTIONS (5)
  - Hypervolaemia [None]
  - Metabolic acidosis [None]
  - Hypotension [None]
  - Respiratory distress [None]
  - Acute kidney injury [None]

NARRATIVE: CASE EVENT DATE: 20220218
